FAERS Safety Report 15940794 (Version 2)
Quarter: 2019Q1

REPORT INFORMATION
  Report Type: Spontaneous
  Country: US (occurrence: US)
  Receive Date: 20190208
  Receipt Date: 20190218
  Transmission Date: 20190417
  Serious: Yes (Hospitalization, Other)
  Sender: FDA-Public Use
  Company Number: US-ASTRAZENECA-2019SE10020

PATIENT
  Age: 10162 Day
  Sex: Male

DRUGS (17)
  1. CARBAMAZEPINE. [Concomitant]
     Active Substance: CARBAMAZEPINE
  2. ZESTRIL [Concomitant]
     Active Substance: LISINOPRIL
  3. NEURONTIN [Concomitant]
     Active Substance: GABAPENTIN
  4. CIPROFLOXACIN. [Concomitant]
     Active Substance: CIPROFLOXACIN
  5. NEXIUM [Suspect]
     Active Substance: ESOMEPRAZOLE MAGNESIUM
     Route: 048
     Dates: start: 20130504
  6. GABAPENTIN. [Concomitant]
     Active Substance: GABAPENTIN
  7. CEFTRIAXON [Concomitant]
     Active Substance: CEFTRIAXONE
  8. LEVSIN [Concomitant]
     Active Substance: HYOSCYAMINE SULFATE
  9. CELEXA [Concomitant]
     Active Substance: CITALOPRAM HYDROBROMIDE
  10. TESTOSTERONE. [Concomitant]
     Active Substance: TESTOSTERONE
  11. FLAGYL [Concomitant]
     Active Substance: METRONIDAZOLE\METRONIDAZOLE HYDROCHLORIDE
  12. RISPERIDONE. [Concomitant]
     Active Substance: RISPERIDONE
  13. CARAFATE [Concomitant]
     Active Substance: SUCRALFATE
  14. ZOFRAN [Concomitant]
     Active Substance: ONDANSETRON HYDROCHLORIDE
  15. NASONEX [Concomitant]
     Active Substance: MOMETASONE FUROATE
  16. PERCOCET [Concomitant]
     Active Substance: ACETAMINOPHEN\OXYCODONE HYDROCHLORIDE
  17. AMPICILLIN [Concomitant]
     Active Substance: AMPICILLIN

REACTIONS (4)
  - Renal failure [Unknown]
  - Renal injury [Unknown]
  - Acute kidney injury [Unknown]
  - Rebound acid hypersecretion [Unknown]

NARRATIVE: CASE EVENT DATE: 20130504
